FAERS Safety Report 22179425 (Version 1)
Quarter: 2023Q2

REPORT INFORMATION
  Report Type: Spontaneous
  Country: DE (occurrence: DE)
  Receive Date: 20230406
  Receipt Date: 20230406
  Transmission Date: 20230721
  Serious: Yes (Other)
  Sender: FDA-Public Use
  Company Number: None

PATIENT
  Age: 23 Year
  Sex: Female
  Weight: 130 kg

DRUGS (3)
  1. IBUPROFEN [Suspect]
     Active Substance: IBUPROFEN
     Indication: Sudden hearing loss
     Dosage: 2000 MILLIGRAM, QD (EVERY 1 DAY) FILM-COATED TABLET
     Route: 048
     Dates: start: 20180113, end: 20180203
  2. IBUPROFEN [Suspect]
     Active Substance: IBUPROFEN
     Indication: Tinnitus
  3. IBUPROFEN [Suspect]
     Active Substance: IBUPROFEN
     Indication: Middle ear inflammation

REACTIONS (2)
  - Hallucination [Recovered/Resolved]
  - Overdose [Unknown]

NARRATIVE: CASE EVENT DATE: 20180115
